FAERS Safety Report 21633153 (Version 1)
Quarter: 2022Q4

REPORT INFORMATION
  Report Type: Spontaneous
  Country: IT (occurrence: IT)
  Receive Date: 20221123
  Receipt Date: 20221123
  Transmission Date: 20230113
  Serious: Yes (Hospitalization)
  Sender: FDA-Public Use
  Company Number: IT-MYLANLABS-2022M1130068

PATIENT
  Age: 80 Year
  Sex: Female

DRUGS (1)
  1. NITROGLYCERIN [Suspect]
     Active Substance: NITROGLYCERIN
     Indication: Arterial spasm
     Dosage: UNK (RECEIVED REPEATED NITROGLYCERIN INFUSIONS)
     Route: 042

REACTIONS (1)
  - Drug ineffective [Unknown]
